FAERS Safety Report 10035787 (Version 2)
Quarter: 2014Q1

REPORT INFORMATION
  Report Type: Spontaneous
  Country: JP (occurrence: JP)
  Receive Date: 20140325
  Receipt Date: 20140328
  Transmission Date: 20141002
  Serious: Yes (Other)
  Sender: FDA-Public Use
  Company Number: JP-GLAXOSMITHKLINE-B0979241A

PATIENT
  Age: 7 Decade
  Sex: Female

DRUGS (1)
  1. FLUTIDE [Suspect]
     Indication: ASTHMA
     Route: 055

REACTIONS (1)
  - Sarcoma [Recovering/Resolving]
